FAERS Safety Report 5038527-4 (Version None)
Quarter: 2006Q2

REPORT INFORMATION
  Report Type: 
  Country: None (occurrence: None)
  Receive Date: 20060601
  Receipt Date: 20060314
  Transmission Date: 20061013
  Serious: No
  Sender: FDA-Public Use
  Company Number: 2006PV010224

PATIENT
  Age: 56 Year
  Sex: Female
  Weight: 102.9665 kg

DRUGS (8)
  1. BYETTA [Suspect]
     Indication: DIABETES MELLITUS NON-INSULIN-DEPENDENT
     Dosage: SEE IMAGE
     Route: 058
     Dates: start: 20060130, end: 20060228
  2. BYETTA [Suspect]
     Indication: DIABETES MELLITUS NON-INSULIN-DEPENDENT
     Dosage: SEE IMAGE
     Route: 058
     Dates: start: 20060301
  3. GLYBURIDE [Concomitant]
  4. ACTOS [Concomitant]
  5. METFORMIN [Concomitant]
  6. SYNTHROID [Concomitant]
  7. DIOVAN [Concomitant]
  8. LIPITOR [Concomitant]

REACTIONS (1)
  - INJECTION SITE URTICARIA [None]
